FAERS Safety Report 4784622-4 (Version None)
Quarter: 2005Q3

REPORT INFORMATION
  Report Type: 
  Country: None (occurrence: None)
  Receive Date: 20050930
  Receipt Date: 20050921
  Transmission Date: 20060218
  Serious: Yes (Disabling)
  Sender: FDA-Public Use
  Company Number: US-MERCK-0509USA03436

PATIENT
  Age: 47 Year
  Sex: Female
  Weight: 68 kg

DRUGS (1)
  1. VIOXX [Suspect]
     Route: 048
     Dates: start: 20000101, end: 20040101

REACTIONS (3)
  - EMOTIONAL DISTRESS [None]
  - HYPOAESTHESIA [None]
  - TRANSIENT ISCHAEMIC ATTACK [None]
